FAERS Safety Report 7681781-0 (Version None)
Quarter: 2011Q3

REPORT INFORMATION
  Report Type: 
  Country: None (occurrence: None)
  Receive Date: 20110812
  Receipt Date: 20110803
  Transmission Date: 20111222
  Serious: Yes (Hospitalization, Other)
  Sender: FDA-Public Use
  Company Number: US-ASTRAZENECA-2011SE43952

PATIENT
  Age: 79 Year
  Sex: Female

DRUGS (3)
  1. ARIMIDEX [Suspect]
     Route: 048
  2. IMITREX [Suspect]
     Route: 065
  3. NEXIUM [Suspect]
     Route: 048

REACTIONS (3)
  - MASTECTOMY [None]
  - BREAST CANCER [None]
  - DRUG NAME CONFUSION [None]
